FAERS Safety Report 5818984-3 (Version None)
Quarter: 2008Q3

REPORT INFORMATION
  Report Type: 
  Country: None (occurrence: None)
  Receive Date: 20080717
  Receipt Date: 20080709
  Transmission Date: 20090109
  Serious: Yes (Death)
  Sender: FDA-Public Use
  Company Number: DSU-2007-00937

PATIENT
  Age: 85 Year
  Sex: Female

DRUGS (6)
  1. OLMESARTAN MEDOXOMIL-HYDROCHLOROTHIAZIDE (HYDROCHLOROTHIAZIDE, OLMESAR [Suspect]
     Indication: HYPERTENSION
     Dosage: 10 MG (QD), PER ORAL; 20/12.5 MG (QD), PER ORAL
     Route: 048
     Dates: start: 20070821, end: 20070828
  2. OLMESARTAN MEDOXOMIL-HYDROCHLOROTHIAZIDE (HYDROCHLOROTHIAZIDE, OLMESAR [Suspect]
     Indication: HYPERTENSION
     Dosage: 10 MG (QD), PER ORAL; 20/12.5 MG (QD), PER ORAL
     Route: 048
     Dates: start: 20070828
  3. FLUIMICIL (ACETYLCYSTEINE) (200 MILLIGRAM) (ACETYLCYSTEINE) [Concomitant]
  4. KLARICID OD (CLARITHROMYCIN) (500 MILLIGRAM) (CLARITHROMYCIN) [Concomitant]
  5. TEBOKAN (GINKGO BILOBA EXTRACT) (GINKGO BILOBA EXTRACT) [Concomitant]
  6. NORGESIC FORTE (ACETYLSALICYLIC ACID, CAFFEINE, ORPHENADRINE CITRATE) [Concomitant]

REACTIONS (7)
  - ASTHENIA [None]
  - BLOOD PRESSURE SYSTOLIC INCREASED [None]
  - GENERAL PHYSICAL HEALTH DETERIORATION [None]
  - HEADACHE [None]
  - PYREXIA [None]
  - SOMNOLENCE [None]
  - THROMBOSIS [None]
